FAERS Safety Report 5712919-X (Version None)
Quarter: 2008Q2

REPORT INFORMATION
  Report Type: 
  Country: None (occurrence: None)
  Receive Date: 20080422
  Receipt Date: 20080418
  Transmission Date: 20081010
  Serious: Yes (Life-Threatening, Hospitalization, Disabling, Other)
  Sender: FDA-Public Use
  Company Number: US-MERCK-0804USA00109

PATIENT
  Age: 54 Year
  Sex: Male
  Weight: 110 kg

DRUGS (9)
  1. SINGULAIR [Suspect]
     Indication: ASTHMA
     Route: 048
     Dates: start: 20071015, end: 20080331
  2. SINGULAIR [Suspect]
     Indication: RHINITIS ALLERGIC
     Route: 048
     Dates: start: 20071015, end: 20080331
  3. ADVAIR HFA [Suspect]
     Route: 065
  4. FLONASE [Concomitant]
     Route: 065
  5. ALBUTEROL [Concomitant]
     Route: 065
  6. XANAX [Concomitant]
     Route: 065
  7. DIOVAN [Concomitant]
     Route: 065
  8. VERAPAMIL [Concomitant]
     Route: 065
  9. AZMACORT [Concomitant]
     Route: 065

REACTIONS (8)
  - ANXIETY [None]
  - BACTERIA URINE [None]
  - BLOOD PRESSURE FLUCTUATION [None]
  - DRUG SCREEN POSITIVE [None]
  - MOOD ALTERED [None]
  - SUICIDAL IDEATION [None]
  - SUICIDE ATTEMPT [None]
  - TREMOR [None]
